FAERS Safety Report 8435688 (Version 3)
Quarter: 2013Q3

REPORT INFORMATION
  Report Type: Report from Study
  Country: US (occurrence: US)
  Receive Date: 20120301
  Receipt Date: 20130724
  Transmission Date: 20140515
  Serious: Yes (Death, Hospitalization, Other)
  Sender: FDA-Public Use
  Company Number: US-ACTELION-A-US2012-61573

PATIENT
  Age: 53 Year
  Sex: Female

DRUGS (3)
  1. TRACLEER [Suspect]
     Indication: PULMONARY ARTERIAL HYPERTENSION
     Dosage: UNK
     Route: 048
  2. COUMADIN [Concomitant]
  3. FLOLAN [Concomitant]

REACTIONS (4)
  - Death [Fatal]
  - Hepatic cancer [Unknown]
  - Colon cancer stage IV [Not Recovered/Not Resolved]
  - Malaise [Unknown]
